FAERS Safety Report 5721289-2 (Version None)
Quarter: 2008Q2

REPORT INFORMATION
  Report Type: 
  Country: None (occurrence: None)
  Receive Date: 20080423
  Receipt Date: 20071012
  Transmission Date: 20081010
  Serious: Yes (Other)
  Sender: FDA-Public Use
  Company Number: 249495

PATIENT

DRUGS (3)
  1. BEVACIZUMAB(BEVACIZUMAB) POWDER AND SOLVENT FOR SOLUTION FOR INFUSION, [Suspect]
     Indication: COLORECTAL CANCER
  2. ELOXATIN [Concomitant]
  3. FLUOROURACIL [Concomitant]

REACTIONS (1)
  - THROMBOCYTOPENIA [None]
